FAERS Safety Report 15312828 (Version 1)
Quarter: 2018Q3

REPORT INFORMATION
  Report Type: Report from Study
  Country: CA (occurrence: CA)
  Receive Date: 20180823
  Receipt Date: 20180823
  Transmission Date: 20181010
  Serious: Yes (Other)
  Sender: FDA-Public Use
  Company Number: CA-BRISTOL-MYERS SQUIBB COMPANY-BMS-2017-119259

PATIENT
  Age: 60 Year
  Sex: Female

DRUGS (3)
  1. NIVOLUMAB [Suspect]
     Active Substance: NIVOLUMAB
     Indication: PRODUCT USED FOR UNKNOWN INDICATION
     Dosage: 193 MG, Q2WK
     Route: 042
     Dates: start: 20171215
  2. NIVOLUMAB [Suspect]
     Active Substance: NIVOLUMAB
     Indication: PRODUCT USED FOR UNKNOWN INDICATION
     Dosage: 195 MG, Q2WK
     Route: 042
     Dates: start: 20171215, end: 20180815
  3. NIVOLUMAB [Suspect]
     Active Substance: NIVOLUMAB
     Indication: MALIGNANT MELANOMA
     Dosage: 3 MG/KG, Q2WK
     Route: 042
     Dates: start: 20171212

REACTIONS (12)
  - Somnolence [Unknown]
  - Nasopharyngitis [Recovering/Resolving]
  - Dry mouth [Unknown]
  - Mucosal inflammation [Unknown]
  - Appetite disorder [Not Recovered/Not Resolved]
  - Pyrexia [Recovering/Resolving]
  - Pain [Recovering/Resolving]
  - Fatigue [Not Recovered/Not Resolved]
  - Anxiety [Unknown]
  - Sleep disorder [Unknown]
  - Dyspepsia [Not Recovered/Not Resolved]
  - Stomatitis [Not Recovered/Not Resolved]

NARRATIVE: CASE EVENT DATE: 20171212
